FAERS Safety Report 13486035 (Version 1)
Quarter: 2017Q2

REPORT INFORMATION
  Report Type: Spontaneous
  Country: CU (occurrence: MX)
  Receive Date: 20170426
  Receipt Date: 20170426
  Transmission Date: 20170830
  Serious: Yes (Other)
  Sender: FDA-Public Use
  Company Number: CU-HQ SPECIALTY-MX-2017INT000139

PATIENT
  Age: 32 Year
  Sex: Male

DRUGS (2)
  1. CISPLATIN. [Suspect]
     Active Substance: CISPLATIN
     Indication: MALIGNANT NEOPLASM OF CONJUNCTIVA
  2. CISPLATIN. [Suspect]
     Active Substance: CISPLATIN
     Indication: SQUAMOUS CELL CARCINOMA
     Dosage: UNK

REACTIONS (2)
  - Conjunctival haemorrhage [Unknown]
  - Chemical eye injury [Unknown]
